FAERS Safety Report 15286356 (Version 1)
Quarter: 2018Q3

REPORT INFORMATION
  Report Type: Spontaneous
  Country: US (occurrence: US)
  Receive Date: 20180816
  Receipt Date: 20180816
  Transmission Date: 20181010
  Serious: No
  Sender: FDA-Public Use
  Company Number: PHEH2018US032819

PATIENT

DRUGS (1)
  1. ENTRESTO [Suspect]
     Active Substance: SACUBITRIL\VALSARTAN
     Indication: FATIGUE
     Dosage: UNK UNK, BID
     Route: 048

REACTIONS (2)
  - Product use in unapproved indication [Unknown]
  - Fatigue [Unknown]
